FAERS Safety Report 4683565-4 (Version None)
Quarter: 2005Q2

REPORT INFORMATION
  Report Type: 
  Country: None (occurrence: None)
  Receive Date: 20050602
  Receipt Date: 20050309
  Transmission Date: 20051028
  Serious: Yes (Death)
  Sender: FDA-Public Use
  Company Number: US_0503113588

PATIENT
  Age: 19 Year
  Sex: Female

DRUGS (1)
  1. CYMBALTA [Suspect]
     Indication: MIGRAINE
     Dosage: 60 MG
     Dates: start: 20050105

REACTIONS (1)
  - COMPLETED SUICIDE [None]
